FAERS Safety Report 7944706-6 (Version None)
Quarter: 2011Q4

REPORT INFORMATION
  Report Type: 
  Country: None (occurrence: None)
  Receive Date: 20111122
  Receipt Date: 20110707
  Transmission Date: 20120403
  Serious: No
  Sender: FDA-Public Use
  Company Number: PHHY2011US61173

PATIENT
  Sex: Female

DRUGS (3)
  1. CYCLOBENZAPRINE [Concomitant]
  2. GILENYA [Suspect]
     Indication: RELAPSING-REMITTING MULTIPLE SCLEROSIS
     Dosage: 0.5 MG, QD, ORAL
     Route: 048
     Dates: start: 20110505
  3. MELOXICAM [Concomitant]

REACTIONS (1)
  - CHEST DISCOMFORT [None]
